FAERS Safety Report 9833080 (Version 2)
Quarter: 2014Q1

REPORT INFORMATION
  Report Type: Spontaneous
  Country: US (occurrence: US)
  Receive Date: 20140121
  Receipt Date: 20140212
  Transmission Date: 20141002
  Serious: Yes (Other)
  Sender: FDA-Public Use
  Company Number: US-009507513-1401USA006103

PATIENT
  Age: 82 Year
  Sex: Female

DRUGS (2)
  1. NASONEX [Suspect]
     Indication: HYPERSENSITIVITY
     Dosage: 2 SPRAYS IN EACH NOSTRIL ONCE A DAY
     Route: 045
  2. VITAMINS (UNSPECIFIED) [Concomitant]

REACTIONS (5)
  - Hearing impaired [Recovered/Resolved]
  - Sinus disorder [Recovered/Resolved]
  - Ear pain [Recovered/Resolved]
  - Exposure to mould [Recovered/Resolved]
  - Product quality issue [Unknown]
